FAERS Safety Report 6515849-9 (Version None)
Quarter: 2009Q4

REPORT INFORMATION
  Report Type: 
  Country: None (occurrence: None)
  Receive Date: 20091223
  Receipt Date: 20091218
  Transmission Date: 20100525
  Serious: Yes (Other)
  Sender: FDA-Public Use
  Company Number: US-RB-027172-09

PATIENT
  Age: 69 Year
  Sex: Male

DRUGS (4)
  1. MUCINEX [Suspect]
     Indication: NASAL CONGESTION
     Route: 048
     Dates: start: 20091211
  2. PEPCID [Concomitant]
     Indication: NASAL CONGESTION
  3. PEPCID [Concomitant]
  4. ZYRTEC [Concomitant]
     Indication: NASAL CONGESTION

REACTIONS (1)
  - FAECES DISCOLOURED [None]
